FAERS Safety Report 23249624 (Version 1)
Quarter: 2023Q4

REPORT INFORMATION
  Report Type: Spontaneous
  Country: IT (occurrence: IT)
  Receive Date: 20231201
  Receipt Date: 20231201
  Transmission Date: 20240110
  Serious: Yes (Hospitalization, Other)
  Sender: FDA-Public Use
  Company Number: None

PATIENT
  Age: 82 Year
  Sex: Male
  Weight: 60 kg

DRUGS (1)
  1. MVASI [Suspect]
     Active Substance: BEVACIZUMAB-AWWB
     Indication: Hepatic cancer
     Dosage: 900 MILLIGRAM
     Route: 040
     Dates: start: 20230414, end: 20230810

REACTIONS (4)
  - Oesophageal varices haemorrhage [Not Recovered/Not Resolved]
  - Presyncope [Unknown]
  - Melaena [Unknown]
  - Off label use [Unknown]

NARRATIVE: CASE EVENT DATE: 20230915
